FAERS Safety Report 15632163 (Version 3)
Quarter: 2019Q1

REPORT INFORMATION
  Report Type: Spontaneous
  Country: JP (occurrence: JP)
  Receive Date: 20181119
  Receipt Date: 20190328
  Transmission Date: 20190417
  Serious: Yes (Hospitalization)
  Sender: FDA-Public Use
  Company Number: JP-JNJFOC-20180517718

PATIENT
  Age: 83 Year
  Sex: Male
  Weight: 70 kg

DRUGS (15)
  1. ONGLYZA [Suspect]
     Active Substance: SAXAGLIPTIN HYDROCHLORIDE
     Indication: PRODUCT USED FOR UNKNOWN INDICATION
     Route: 048
     Dates: start: 20160314, end: 20180514
  2. AIMIX [Concomitant]
     Active Substance: AMLODIPINE BESYLATE\IRBESARTAN
     Indication: HYPERTENSION
     Route: 048
  3. WYTENSIN [Concomitant]
     Active Substance: GUANABENZ ACETATE
     Indication: HYPERTENSION
     Route: 048
  4. CANAGLU [Suspect]
     Active Substance: CANAGLIFLOZIN
     Indication: TYPE 2 DIABETES MELLITUS
     Route: 048
     Dates: start: 20180312, end: 20180425
  5. LOXONIN [Concomitant]
     Active Substance: LOXOPROFEN SODIUM
     Route: 048
     Dates: start: 20180507
  6. LIPITOR [Concomitant]
     Active Substance: ATORVASTATIN CALCIUM
     Indication: HYPERLIPIDAEMIA
     Route: 048
  7. GENTACIN [Concomitant]
     Active Substance: GENTAMICIN SULFATE
     Indication: RASH ERYTHEMATOUS
     Dosage: BLISTER SITE
     Route: 061
     Dates: start: 20180425
  8. FEBURIC [Concomitant]
     Active Substance: FEBUXOSTAT
     Indication: HYPERURICAEMIA
     Route: 048
  9. URIEF [Concomitant]
     Active Substance: SILODOSIN
     Indication: BENIGN PROSTATIC HYPERPLASIA
     Route: 048
  10. TALION [BEPOTASTINE BESILATE] [Suspect]
     Active Substance: BEPOTASTINE BESILATE
     Indication: RASH ERYTHEMATOUS
     Route: 048
     Dates: start: 20180425
  11. POLARAMINE [Concomitant]
     Active Substance: DEXCHLORPHENIRAMINE MALEATE
     Indication: RASH ERYTHEMATOUS
     Route: 048
     Dates: start: 20180425, end: 20180530
  12. HUMULIN R [Concomitant]
     Active Substance: INSULIN HUMAN
     Route: 065
     Dates: start: 20180507
  13. TAKELDA [Concomitant]
     Active Substance: ASPIRIN\LANSOPRAZOLE
     Indication: ANGINA PECTORIS
     Route: 048
  14. DIACORT [Concomitant]
     Active Substance: DIFLORASONE DIACETATE
     Indication: RASH ERYTHEMATOUS
     Dosage: BLISTER SITE
     Route: 061
     Dates: start: 20180425
  15. LENDORMIN [Concomitant]
     Active Substance: BROTIZOLAM
     Route: 048
     Dates: start: 20180507

REACTIONS (2)
  - Pemphigoid [Unknown]
  - Lymphocyte stimulation test positive [None]

NARRATIVE: CASE EVENT DATE: 20180508
